FAERS Safety Report 5046374-2 (Version None)
Quarter: 2006Q3

REPORT INFORMATION
  Report Type: 
  Country: None (occurrence: None)
  Receive Date: 20060710
  Receipt Date: 20060628
  Transmission Date: 20061208
  Serious: Yes (Hospitalization)
  Sender: FDA-Public Use
  Company Number: JP-JNJFOC-20060600667

PATIENT
  Sex: Female

DRUGS (11)
  1. ITRACONAZOLE [Suspect]
     Route: 048
  2. ITRACONAZOLE [Suspect]
     Indication: NAIL TINEA
     Route: 048
  3. DIPYRIDAMOLE [Concomitant]
     Route: 048
  4. TOCOPHEROL CONCENTRATE CAP [Concomitant]
     Route: 048
  5. MECOBALAMIN [Concomitant]
     Route: 048
  6. ISOSORBIDE DINITRATE [Concomitant]
     Route: 048
  7. ENALAPRIL MALEATE [Concomitant]
     Route: 048
  8. ALFACALCIDOL [Concomitant]
     Route: 048
  9. CALCIUM L-ASPARTATE [Concomitant]
     Route: 048
  10. ALENDRONATE SODIUM [Concomitant]
     Route: 048
  11. INSULIN [Concomitant]
     Route: 058

REACTIONS (1)
  - CHOLESTASIS [None]
